FAERS Safety Report 11168537 (Version 2)
Quarter: 2015Q2

REPORT INFORMATION
  Report Type: Spontaneous
  Country: US (occurrence: US)
  Receive Date: 20150605
  Receipt Date: 20150624
  Transmission Date: 20150821
  Serious: Yes (Other)
  Sender: FDA-Public Use
  Company Number: US-PFIZER INC-2015185713

PATIENT
  Age: 69 Year
  Sex: Female

DRUGS (4)
  1. AMOXI-CLAV [Suspect]
     Active Substance: AMOXICILLIN\CLAVULANIC ACID
     Indication: BONE SWELLING
  2. AMOXI-CLAV [Suspect]
     Active Substance: AMOXICILLIN\CLAVULANIC ACID
     Indication: TOOTH DISORDER
     Dosage: 875 MG, 2X/DAY (ALMOST MADE THE 10 DAYS; 4 PILLS LEFT)
     Route: 048
     Dates: start: 20131014
  3. CLINDAMYCIN HCL [Suspect]
     Active Substance: CLINDAMYCIN HYDROCHLORIDE
     Indication: TOOTH DISORDER
     Dosage: 150 MG, 4X/DAY (TOOK ONLY LESS THAN 1/2 OF THEM (40 PILLS PRESCRIBED-24 LEFT OVER/22 LEFT OVER))
     Dates: start: 20131031
  4. CLINDAMYCIN HCL [Suspect]
     Active Substance: CLINDAMYCIN HYDROCHLORIDE
     Indication: BONE SWELLING

REACTIONS (6)
  - Pain in extremity [Unknown]
  - Feeling abnormal [Unknown]
  - Drug ineffective [Unknown]
  - Somnolence [Unknown]
  - Peripheral swelling [Unknown]
  - Drug intolerance [Unknown]
